FAERS Safety Report 9257597 (Version 1)
Quarter: 2013Q1

REPORT INFORMATION
  Report Type: Spontaneous
  Country: US (occurrence: None)
  Receive Date: 20121212
  Receipt Date: 20121212
  Transmission Date: 20140127
  Serious: No
  Sender: FDA-Public Use
  Company Number: 1208USA006592

PATIENT
  Age: 70 Year
  Sex: Female

DRUGS (3)
  1. PEGINTRON (PEGINTERFERON ALFA 2B) POWDER FOR INJECTION [Suspect]
     Indication: HEPATITIS C
     Dosage: REDIPEN
     Dates: start: 20120812
  2. RIBAVIRIN  (RIBAVIRIN) [Suspect]
     Indication: HEPATITIS C
     Dates: start: 20120813
  3. VICTRELIS  (BOCEPREVIR) [Suspect]
     Indication: HEPATITIS C
     Dates: start: 20120909

REACTIONS (9)
  - Sleep disorder [None]
  - White blood cell count decreased [None]
  - Headache [None]
  - Asthenia [None]
  - Pyrexia [None]
  - Constipation [None]
  - Depression [None]
  - Pruritus [None]
  - Rash [None]
